FAERS Safety Report 11860849 (Version 2)
Quarter: 2016Q2

REPORT INFORMATION
  Report Type: Report from Study
  Country: NL (occurrence: NL)
  Receive Date: 20151222
  Receipt Date: 20160602
  Transmission Date: 20160815
  Serious: Yes (Hospitalization, Other)
  Sender: FDA-Public Use
  Company Number: NL-ABBVIE-15P-114-1519317-00

PATIENT
  Sex: Female

DRUGS (1)
  1. DUODOPA [Suspect]
     Active Substance: CARBIDOPA\LEVODOPA
     Indication: PARKINSON^S DISEASE
     Dosage: 20/5MG/ML
     Route: 050
     Dates: start: 20090629

REACTIONS (4)
  - Activities of daily living impaired [Not Recovered/Not Resolved]
  - Incorrect dose administered [Unknown]
  - Breast cancer [Unknown]
  - Stoma site infection [Unknown]

NARRATIVE: CASE EVENT DATE: 2010
